FAERS Safety Report 22649315 (Version 1)
Quarter: 2023Q2

REPORT INFORMATION
  Report Type: Spontaneous
  Country: US (occurrence: US)
  Receive Date: 20230628
  Receipt Date: 20230628
  Transmission Date: 20230721
  Serious: No
  Sender: FDA-Public Use
  Company Number: US-Accord-300935

PATIENT
  Sex: Male
  Weight: 64.86 kg

DRUGS (1)
  1. MYCOPHENOLATE MOFETIL [Suspect]
     Active Substance: MYCOPHENOLATE MOFETIL
     Indication: Systemic lupus erythematosus
     Dosage: 2 CAPSULES DURING THE DAY AND ONE CAPSULE EVERY NIGHT, STRENGTH: 500 MG
     Route: 048

REACTIONS (2)
  - Product dose omission issue [Unknown]
  - Therapeutic product effect delayed [Unknown]
